FAERS Safety Report 15117169 (Version 7)
Quarter: 2019Q4

REPORT INFORMATION
  Report Type: Report from Study
  Country: DE (occurrence: DE)
  Receive Date: 20180706
  Receipt Date: 20191017
  Transmission Date: 20200122
  Serious: Yes (Other)
  Sender: FDA-Public Use
  Company Number: PHHY2018DE035189

PATIENT
  Age: 62 Year
  Sex: Female

DRUGS (3)
  1. LETROZOLE 1A PHARMA [Suspect]
     Active Substance: LETROZOLE
     Indication: BREAST CANCER METASTATIC
     Dosage: 2.5 MG, QD
     Route: 048
     Dates: start: 20180412, end: 20180726
  2. EXEMESTANE. [Suspect]
     Active Substance: EXEMESTANE
     Indication: BREAST CANCER METASTATIC
     Dosage: 25 MG, QD
     Route: 048
     Dates: start: 20181108
  3. KISQALI [Suspect]
     Active Substance: RIBOCICLIB
     Indication: BREAST CANCER METASTATIC
     Dosage: 600 MG (INTAKE OF 21 DAYS, THAN 7 DAYS PAUSE)
     Route: 048
     Dates: start: 20180423, end: 20180626

REACTIONS (2)
  - Liver function test increased [Recovered/Resolved with Sequelae]
  - White blood cell count decreased [Unknown]

NARRATIVE: CASE EVENT DATE: 20180625
